FAERS Safety Report 8014260-1 (Version None)
Quarter: 2011Q4

REPORT INFORMATION
  Report Type: 
  Country: None (occurrence: None)
  Receive Date: 20111229
  Receipt Date: 20111221
  Transmission Date: 20120403
  Serious: Yes (Death, Hospitalization)
  Sender: FDA-Public Use
  Company Number: US-GLAXOSMITHKLINE-B0764584A

PATIENT
  Age: 80 Year
  Sex: Female
  Weight: 99.1 kg

DRUGS (1)
  1. AVANDIA [Suspect]
     Indication: DIABETES MELLITUS
     Dosage: 4MG TWICE PER DAY
     Route: 048
     Dates: start: 20090201, end: 20100701

REACTIONS (7)
  - CEREBROVASCULAR ACCIDENT [None]
  - AORTIC STENOSIS [None]
  - AORTIC VALVE DISEASE [None]
  - DEMENTIA [None]
  - TRANSIENT ISCHAEMIC ATTACK [None]
  - PULMONARY HYPERTENSION [None]
  - LOBAR PNEUMONIA [None]
